FAERS Safety Report 23197398 (Version 1)
Quarter: 2023Q4

REPORT INFORMATION
  Report Type: Spontaneous
  Country: FR (occurrence: FR)
  Receive Date: 20231117
  Receipt Date: 20231117
  Transmission Date: 20240109
  Serious: Yes (Life-Threatening, Hospitalization)
  Sender: FDA-Public Use
  Company Number: FR-SUN PHARMACEUTICAL INDUSTRIES LTD-2023RR-418392

PATIENT
  Age: 48 Year
  Sex: Male
  Weight: 84 kg

DRUGS (8)
  1. ACETAMINOPHEN [Interacting]
     Active Substance: ACETAMINOPHEN
     Indication: Poisoning deliberate
     Dosage: 4 GRAM
     Route: 048
     Dates: start: 20200914, end: 20200914
  2. METFORMIN [Interacting]
     Active Substance: METFORMIN HYDROCHLORIDE
     Indication: Poisoning deliberate
     Dosage: UNK
     Route: 048
     Dates: start: 20200914, end: 20200914
  3. GLICLAZIDE [Interacting]
     Active Substance: GLICLAZIDE
     Indication: Poisoning deliberate
     Dosage: 1800 MILLIGRAM
     Route: 048
     Dates: start: 20200914, end: 20200914
  4. NAPROXEN [Interacting]
     Active Substance: NAPROXEN
     Indication: Poisoning deliberate
     Dosage: 16500 MILLIGRAM
     Route: 048
     Dates: start: 20200914, end: 20200914
  5. OXAZEPAM [Suspect]
     Active Substance: OXAZEPAM
     Indication: Poisoning deliberate
     Dosage: 10 DOSAGE FORM
     Route: 048
     Dates: start: 20200914, end: 20200914
  6. ALCOHOL [Interacting]
     Active Substance: ALCOHOL
     Indication: Poisoning deliberate
     Dosage: EAU DE VIE
     Route: 048
     Dates: start: 20200914, end: 20200914
  7. LEVOTHYROXINE [Suspect]
     Active Substance: LEVOTHYROXINE
     Indication: Poisoning deliberate
     Dosage: 30 DOSAGE FORM
     Route: 048
     Dates: start: 20200914, end: 20200914
  8. LYRICA [Suspect]
     Active Substance: PREGABALIN
     Indication: Poisoning deliberate
     Dosage: 42 DOSAGE FORM
     Route: 048
     Dates: start: 20200914, end: 20200914

REACTIONS (5)
  - Lactic acidosis [Recovered/Resolved]
  - Potentiating drug interaction [Recovered/Resolved]
  - Hypoglycaemia [Recovered/Resolved]
  - Poisoning deliberate [Recovered/Resolved]
  - Coma [Recovered/Resolved]

NARRATIVE: CASE EVENT DATE: 20200914
